FAERS Safety Report 5612198-8 (Version None)
Quarter: 2008Q1

REPORT INFORMATION
  Report Type: 
  Country: None (occurrence: None)
  Receive Date: 20080204
  Receipt Date: 20080125
  Transmission Date: 20080703
  Serious: Yes (Death, Hospitalization)
  Sender: FDA-Public Use
  Company Number: JP-NOVOPROD-236432

PATIENT

DRUGS (8)
  1. NOVOSEVEN [Suspect]
     Indication: ACQUIRED HAEMOPHILIA
     Dosage: 4.8 MG, AT 12:00
     Dates: start: 20040407, end: 20040407
  2. NOVOSEVEN [Suspect]
     Dosage: 4.8 MG, AT 15:00
     Dates: start: 20040407, end: 20040407
  3. NOVOSEVEN [Suspect]
     Dosage: 4.8 MG, AT 18:00
     Dates: start: 20040407, end: 20040407
  4. THROMBIN LOCAL SOLUTION [Concomitant]
     Dosage: 5000 UNK, UNK
     Dates: start: 20040408, end: 20040408
  5. DOPAMINE HYDROCHLORIDE [Concomitant]
     Dosage: 400 ML, UNK
     Route: 042
     Dates: start: 20040411, end: 20040413
  6. DOBUTAMINE HYDROCHLORIDE [Concomitant]
     Dosage: 2A
     Route: 042
     Dates: start: 20040412, end: 20040413
  7. METOCLOPRAMIDE [Concomitant]
     Dosage: 1A
     Route: 042
     Dates: start: 20040411, end: 20040412
  8. METOCLOPRAMIDE [Concomitant]
     Dosage: 2A
     Route: 042
     Dates: start: 20040412, end: 20040412

REACTIONS (1)
  - THERAPEUTIC RESPONSE DECREASED [None]
